FAERS Safety Report 9680685 (Version 1)
Quarter: 2013Q4

REPORT INFORMATION
  Report Type: Spontaneous
  Country: US (occurrence: US)
  Receive Date: 20131111
  Receipt Date: 20131111
  Transmission Date: 20140711
  Serious: No
  Sender: FDA-Public Use
  Company Number: US-VERTEX PHARMACEUTICALS INC-2013-010879

PATIENT
  Sex: Male

DRUGS (3)
  1. INCIVEK [Suspect]
     Indication: HEPATITIS C
  2. RIBAVIRIN [Suspect]
     Indication: HEPATITIS C
  3. PEGINTERFERON [Suspect]
     Indication: HEPATITIS C

REACTIONS (2)
  - Tremor [Not Recovered/Not Resolved]
  - Rash [Not Recovered/Not Resolved]
